FAERS Safety Report 18872932 (Version 1)
Quarter: 2021Q1

REPORT INFORMATION
  Report Type: Spontaneous
  Country: CA (occurrence: CA)
  Receive Date: 20210210
  Receipt Date: 20210210
  Transmission Date: 20210420
  Serious: Yes (Disabling, Other)
  Sender: FDA-Public Use
  Company Number: CA-TARO-2021TAR00099

PATIENT
  Age: 68 Year
  Sex: Female
  Weight: 77.1 kg

DRUGS (2)
  1. TARO?CLOMIPRAMINE [Suspect]
     Active Substance: CLOMIPRAMINE HYDROCHLORIDE
     Indication: ANTIDEPRESSANT THERAPY
     Dosage: UNK
     Route: 048
     Dates: start: 20201127, end: 20210125
  2. TARO?CLOMIPRAMINE [Suspect]
     Active Substance: CLOMIPRAMINE HYDROCHLORIDE
     Indication: ANTIDEPRESSANT THERAPY
     Dosage: UNK
     Route: 048
     Dates: start: 20201127, end: 20210125

REACTIONS (4)
  - Foreign body in throat [Not Recovered/Not Resolved]
  - Product substitution issue [Unknown]
  - Drug ineffective [Unknown]
  - Dyspepsia [Not Recovered/Not Resolved]

NARRATIVE: CASE EVENT DATE: 202012
